FAERS Safety Report 19666989 (Version 1)
Quarter: 2021Q3

REPORT INFORMATION
  Report Type: Report from Study
  Country: US (occurrence: US)
  Receive Date: 20210806
  Receipt Date: 20210806
  Transmission Date: 20211014
  Serious: Yes (Other)
  Sender: FDA-Public Use
  Company Number: US-ASTRAZENECA-2021A657870

PATIENT
  Sex: Female

DRUGS (3)
  1. LOVENOX [Concomitant]
     Active Substance: ENOXAPARIN SODIUM
  2. LYNPARZA [Suspect]
     Active Substance: OLAPARIB
     Route: 048
  3. METHIMAZOLE. [Concomitant]
     Active Substance: METHIMAZOLE

REACTIONS (3)
  - Fatigue [Unknown]
  - Basedow^s disease [Unknown]
  - Pulmonary thrombosis [Unknown]
